FAERS Safety Report 7328990-8 (Version None)
Quarter: 2011Q1

REPORT INFORMATION
  Report Type: 
  Country: None (occurrence: None)
  Receive Date: 20110303
  Receipt Date: 20110223
  Transmission Date: 20110831
  Serious: Yes (Death, Hospitalization)
  Sender: FDA-Public Use
  Company Number: PH-BAXTER-2011BH003481

PATIENT
  Age: 57 Year
  Sex: Male

DRUGS (1)
  1. DIANEAL [Suspect]
     Indication: PERITONEAL DIALYSIS
     Route: 033
     Dates: start: 20100918, end: 20110201

REACTIONS (4)
  - PSEUDOMONAS INFECTION [None]
  - PERITONEAL DIALYSIS COMPLICATION [None]
  - FUNGAL PERITONITIS [None]
  - RENAL FAILURE CHRONIC [None]
